FAERS Safety Report 6309573-5 (Version None)
Quarter: 2009Q3

REPORT INFORMATION
  Report Type: 
  Country: None (occurrence: None)
  Receive Date: 20090814
  Receipt Date: 20090804
  Transmission Date: 20100115
  Serious: Yes (Other)
  Sender: FDA-Public Use
  Company Number: PHHY2009GB32909

PATIENT
  Sex: Male

DRUGS (2)
  1. CLOZARIL [Suspect]
     Indication: SCHIZOPHRENIA
     Dosage: 25 MG, UNK
     Dates: start: 20090803
  2. CLOZARIL [Suspect]
     Dosage: 25 MG, UNK
     Dates: start: 20090804

REACTIONS (3)
  - BLOOD PRESSURE ABNORMAL [None]
  - DIZZINESS [None]
  - HEART RATE INCREASED [None]
